FAERS Safety Report 11569053 (Version 1)
Quarter: 2015Q3

REPORT INFORMATION
  Report Type: Spontaneous
  Country: US (occurrence: None)
  Receive Date: 20150928
  Receipt Date: 20150928
  Transmission Date: 20151125
  Serious: Yes (Life-Threatening)
  Sender: FDA-Public Use
  Company Number: None

PATIENT
  Age: 29 Year
  Sex: Female
  Weight: 77.11 kg

DRUGS (1)
  1. PARAGARD T 380A [Suspect]
     Active Substance: COPPER
     Dates: start: 20100607, end: 20150727

REACTIONS (5)
  - Uterine pain [None]
  - Embedded device [None]
  - Complication of device removal [None]
  - Device breakage [None]
  - Device dislocation [None]

NARRATIVE: CASE EVENT DATE: 20150726
